FAERS Safety Report 10547608 (Version 1)
Quarter: 2014Q4

REPORT INFORMATION
  Report Type: Spontaneous
  Country: US (occurrence: None)
  Receive Date: 20141010
  Receipt Date: 20141010
  Transmission Date: 20150529
  Serious: Yes (Hospitalization)
  Sender: FDA-Public Use
  Company Number: 163-POMAL-14060254

PATIENT
  Age: 64 Year
  Sex: Female
  Weight: 70.3 kg

DRUGS (5)
  1. ECOTRIN ( ACETYLSALICYLIC ACID) [Concomitant]
  2. ZANTAC ( RANITIDINE HYDROCHLORIDE) [Concomitant]
  3. POMALYST [Suspect]
     Active Substance: POMALIDOMIDE
     Indication: PLASMA CELL MYELOMA
     Dosage: 4 MG, 21 IN 28 D, PO?TEMPORARY INTERRUTION
     Route: 048
     Dates: start: 20140219
  4. ACIDOPHILUS ( LACTOBACILLUS ACIDOPHILUS) [Concomitant]
  5. VELCADE ( BORTEZOMIB) [Concomitant]

REACTIONS (1)
  - Pneumonia [None]

NARRATIVE: CASE EVENT DATE: 20140522
